FAERS Safety Report 4491285-4 (Version None)
Quarter: 2004Q3

REPORT INFORMATION
  Report Type: 
  Country: None (occurrence: None)
  Receive Date: 20040921
  Receipt Date: 20040520
  Transmission Date: 20050211
  Serious: Yes (Hospitalization)
  Sender: FDA-Public Use
  Company Number: 163-20785-04030301 (0)

PATIENT
  Age: 61 Year
  Weight: 41.4134 kg

DRUGS (10)
  1. THALOMID [Suspect]
     Indication: PANCREATIC CARCINOMA
     Dosage: SEE IMAGE
     Route: 048
     Dates: start: 20031114, end: 20031226
  2. THALOMID [Suspect]
     Indication: PANCREATIC CARCINOMA
     Dosage: SEE IMAGE
     Route: 048
     Dates: start: 20031107, end: 20040310
  3. GEMCITABINE (GEMCITABINE) [Suspect]
     Indication: PANCREATIC CARCINOMA
     Dosage: SEE IMAGE
     Route: 042
     Dates: start: 20031107, end: 20040228
  4. COUMADIN [Concomitant]
  5. LACTULOSE [Concomitant]
  6. MIRALAX [Concomitant]
  7. SENOKOT [Concomitant]
  8. COMPAZINE [Concomitant]
  9. KYTRIL [Concomitant]
  10. ANZEMET (DOLASETRON MESILATE) [Concomitant]

REACTIONS (12)
  - ASTHENIA [None]
  - BALANCE DISORDER [None]
  - CELLULITIS [None]
  - CONSTIPATION [None]
  - DECREASED APPETITE [None]
  - DEEP VEIN THROMBOSIS [None]
  - DISEASE PROGRESSION [None]
  - DYSGEUSIA [None]
  - ERYTHEMA [None]
  - OEDEMA [None]
  - PARAESTHESIA [None]
  - PYREXIA [None]
